FAERS Safety Report 4395900-5 (Version None)
Quarter: 2004Q3

REPORT INFORMATION
  Report Type: 
  Country: None (occurrence: None)
  Receive Date: 20040708
  Receipt Date: 20040628
  Transmission Date: 20050211
  Serious: Yes (Hospitalization)
  Sender: FDA-Public Use
  Company Number: 2004UW13393

PATIENT
  Sex: Female

DRUGS (2)
  1. ARIMIDEX [Suspect]
     Indication: BREAST CANCER
     Dosage: 1 MG PO
     Route: 048
     Dates: start: 20020601
  2. ZOLADEX [Suspect]
     Indication: BREAST CANCER
     Dosage: 3.6 MG SQ
     Route: 058
     Dates: start: 20020601

REACTIONS (4)
  - DEPRESSION [None]
  - MANIA [None]
  - PARANOIA [None]
  - SUICIDE ATTEMPT [None]
